FAERS Safety Report 4971074-4 (Version None)
Quarter: 2006Q1

REPORT INFORMATION
  Report Type: 
  Country: None (occurrence: None)
  Receive Date: 20060207
  Receipt Date: 20050728
  Transmission Date: 20060701
  Serious: Yes (Hospitalization, Other)
  Sender: FDA-Public Use
  Company Number: USA0508104223

PATIENT
  Age: 55 Year
  Sex: Female

DRUGS (3)
  1. EVISTA [Suspect]
     Dosage: 60 MG
     Dates: end: 20050601
  2. ANTIDEPRESSANTS [Concomitant]
  3. TRANQUILIZERS [Concomitant]

REACTIONS (1)
  - PULMONARY EMBOLISM [None]
